FAERS Safety Report 21384481 (Version 2)
Quarter: 2022Q4

REPORT INFORMATION
  Report Type: Other
  Country: US (occurrence: None)
  Receive Date: 20220928
  Receipt Date: 20221226
  Transmission Date: 20230113
  Serious: Yes (Hospitalization, Other)
  Sender: FDA-Public Use
  Company Number: US-ROCHE-3186152

PATIENT
  Age: 63 Year
  Sex: Female
  Weight: 136.20 kg

DRUGS (10)
  1. OCREVUS [Suspect]
     Active Substance: OCRELIZUMAB
     Indication: Relapsing multiple sclerosis
     Dosage: ON DAY 1 AND DAY 15
     Route: 042
     Dates: start: 202008, end: 20220411
  2. OCREVUS [Suspect]
     Active Substance: OCRELIZUMAB
     Dosage: DATE OF TREATMENT: 03/SEP/2020,17/AUG/2020,03/AUG/2020,4/MAR/2021, 23/SEP/2021,04/APR/2022
     Route: 042
     Dates: start: 202203, end: 202204
  3. SYNTHROID [Concomitant]
     Active Substance: LEVOTHYROXINE SODIUM
  4. LIOTHYRONINE [Concomitant]
     Active Substance: LIOTHYRONINE
  5. METOPROLOL [Concomitant]
     Active Substance: METOPROLOL
  6. DALFAMPRIDINE [Concomitant]
     Active Substance: DALFAMPRIDINE
  7. FLECAINIDE [Concomitant]
     Active Substance: FLECAINIDE
  8. OMEPRAZOLE [Concomitant]
     Active Substance: OMEPRAZOLE
  9. PREDNISONE [Concomitant]
     Active Substance: PREDNISONE
  10. VITAMIN D3 [Concomitant]
     Active Substance: CHOLECALCIFEROL

REACTIONS (4)
  - Respiratory tract infection [Recovered/Resolved]
  - Cardiac failure [Not Recovered/Not Resolved]
  - COVID-19 [Recovered/Resolved]
  - General physical health deterioration [Not Recovered/Not Resolved]

NARRATIVE: CASE EVENT DATE: 20210101
